FAERS Safety Report 7860919-6 (Version None)
Quarter: 2011Q4

REPORT INFORMATION
  Report Type: 
  Country: None (occurrence: None)
  Receive Date: 20111027
  Receipt Date: 20111025
  Transmission Date: 20120403
  Serious: Yes (Disabling)
  Sender: FDA-Public Use
  Company Number: US-MERCK-1110USA03898

PATIENT
  Age: 42 Year
  Sex: Male

DRUGS (1)
  1. PROPECIA [Suspect]
     Indication: ANDROGENETIC ALOPECIA
     Route: 065
     Dates: start: 20080901

REACTIONS (8)
  - ANXIETY [None]
  - DEPRESSION [None]
  - TESTICULAR PAIN [None]
  - ERECTILE DYSFUNCTION [None]
  - SEXUAL DYSFUNCTION [None]
  - COGNITIVE DISORDER [None]
  - SEMEN VOLUME DECREASED [None]
  - LIBIDO DECREASED [None]
